FAERS Safety Report 4830671-7 (Version None)
Quarter: 2005Q4

REPORT INFORMATION
  Report Type: 
  Country: None (occurrence: None)
  Receive Date: 20051114
  Receipt Date: 20051027
  Transmission Date: 20060501
  Serious: Yes (Life-Threatening)
  Sender: FDA-Public Use
  Company Number: 430001L03ITA

PATIENT
  Age: 56 Year
  Sex: Male

DRUGS (3)
  1. NOVANTRONE [Suspect]
     Indication: MULTIPLE SCLEROSIS
     Dosage: 10 MG/M2, 1 IN 3 MONTHS, INTRAVENOUS
     Route: 042
     Dates: start: 19980817, end: 20010130
  2. INTERFERON BETA (INTERFERON BETA) [Suspect]
     Indication: MULTIPLE SCLEROSIS
     Dates: start: 20011101, end: 20020401
  3. CORTICOSTEROID NOS [Concomitant]

REACTIONS (5)
  - ACUTE PROMYELOCYTIC LEUKAEMIA [None]
  - COAGULOPATHY [None]
  - LEUKOCYTOSIS [None]
  - PANCYTOPENIA [None]
  - PNEUMONIA [None]
